FAERS Safety Report 4451701-0 (Version None)
Quarter: 2004Q3

REPORT INFORMATION
  Report Type: 
  Country: None (occurrence: None)
  Receive Date: 20040915
  Receipt Date: 20040903
  Transmission Date: 20050211
  Serious: Yes (Hospitalization, Disabling)
  Sender: FDA-Public Use
  Company Number: 2004-09-0002

PATIENT
  Sex: Male

DRUGS (4)
  1. QVAR 40 [Suspect]
     Indication: ASTHMA
     Dosage: 4 PUFFS BID INHALATION
     Route: 055
     Dates: start: 20021001, end: 20030601
  2. SYMBICORT [Suspect]
     Indication: ASTHMA
     Dosage: 4 PUFFS BID INHALATION
     Route: 055
     Dates: start: 20030601, end: 20040301
  3. VENTOLIN [Concomitant]
  4. SEREVENT [Concomitant]

REACTIONS (8)
  - ABDOMINAL PAIN [None]
  - ABNORMAL BEHAVIOUR [None]
  - HEADACHE [None]
  - MIGRAINE [None]
  - PALLOR [None]
  - PHARYNGITIS [None]
  - SKIN DISCOLOURATION [None]
  - TEARFULNESS [None]
